FAERS Safety Report 9376075 (Version 2)
Quarter: 2013Q4

REPORT INFORMATION
  Report Type: Spontaneous
  Country: GB (occurrence: GB)
  Receive Date: 20130629
  Receipt Date: 20131106
  Transmission Date: 20140711
  Serious: Yes (Hospitalization)
  Sender: FDA-Public Use
  Company Number: GB-MYLANLABS-2013S1013359

PATIENT
  Age: 54 Year
  Sex: Male
  Weight: 69.5 kg

DRUGS (11)
  1. AZATHIOPRINE [Suspect]
     Indication: COLITIS ULCERATIVE
     Route: 048
     Dates: start: 20110427, end: 20121209
  2. AZATHIOPRINE [Suspect]
     Indication: UVEITIS
     Route: 048
     Dates: start: 20110427, end: 20121209
  3. INFLIXIMAB [Suspect]
     Indication: COLITIS ULCERATIVE
     Route: 042
     Dates: start: 20121112, end: 20121126
  4. INFLIXIMAB [Suspect]
     Indication: UVEITIS
     Route: 042
     Dates: start: 20121112, end: 20121126
  5. ALENDRONATE [Concomitant]
     Indication: PRODUCT USED FOR UNKNOWN INDICATION
  6. CALCEOS [Concomitant]
     Indication: PRODUCT USED FOR UNKNOWN INDICATION
  7. PENTASA [Concomitant]
     Indication: PRODUCT USED FOR UNKNOWN INDICATION
     Dates: start: 201208
  8. PRED FORTE [Concomitant]
     Indication: PRODUCT USED FOR UNKNOWN INDICATION
  9. PREDNISOLONE [Concomitant]
     Indication: COLITIS ULCERATIVE
     Dates: start: 2006, end: 2011
  10. PROGRAF [Concomitant]
     Indication: UVEITIS
  11. TACROLIMUS [Concomitant]
     Indication: PRODUCT USED FOR UNKNOWN INDICATION
     Dates: end: 201205

REACTIONS (3)
  - Renal failure acute [Recovered/Resolved]
  - Pancytopenia [Recovered/Resolved]
  - Sepsis [Recovered/Resolved]
